FAERS Safety Report 12541459 (Version 2)
Quarter: 2016Q4

REPORT INFORMATION
  Report Type: Other
  Country: FR (occurrence: FR)
  Receive Date: 20160708
  Receipt Date: 20161103
  Transmission Date: 20170207
  Serious: Yes (Other)
  Sender: FDA-Public Use
  Company Number: FR-VALIDUS PHARMACEUTICALS LLC-FR-2016VAL002245

PATIENT
  Age: 86 Year
  Sex: Female

DRUGS (9)
  1. FUROSEMIDE. [Suspect]
     Active Substance: FUROSEMIDE
     Indication: HYPERTENSION
     Dosage: 20 MG, DAILY
     Route: 048
     Dates: start: 20151120
  2. FENTANYL. [Suspect]
     Active Substance: FENTANYL
     Indication: PAIN
     Dosage: 12 ?G, EVERY HOUR
     Route: 065
     Dates: start: 20150611
  3. HEMIGOXINE NATIVELLE [Suspect]
     Active Substance: DIGOXIN
     Indication: ATRIAL FIBRILLATION
     Dosage: 0.125 MG, QOD
     Route: 065
     Dates: start: 20151121
  4. DOLIPRANE [Suspect]
     Active Substance: ACETAMINOPHEN
     Indication: PAIN
     Dosage: 2 DF, TID
     Route: 048
     Dates: start: 20151211
  5. PAROXETINE HYDROCHLORIDE. [Suspect]
     Active Substance: PAROXETINE HYDROCHLORIDE
     Dosage: 20 MILLIGRAM(S);DAILY
     Route: 048
     Dates: start: 20160705
  6. INEXIUM                            /01479303/ [Suspect]
     Active Substance: ESOMEPRAZOLE
     Indication: DYSPHAGIA
     Dosage: 40 MG, DAILY
     Route: 048
     Dates: start: 20141126, end: 20160621
  7. PAROXETINE HYDROCHLORIDE. [Suspect]
     Active Substance: PAROXETINE HYDROCHLORIDE
     Indication: PRODUCT USED FOR UNKNOWN INDICATION
     Dosage: 20 MG, DAILY
     Route: 048
     Dates: start: 20151219, end: 20160621
  8. BISOCE [Suspect]
     Active Substance: BISOPROLOL
     Indication: HYPERTENSION
     Dosage: 1 DF, DAILY
     Route: 048
     Dates: start: 20150206
  9. ELIQUIS [Suspect]
     Active Substance: APIXABAN
     Indication: ISCHAEMIC STROKE
     Dosage: 1 DF, BID
     Route: 048
     Dates: start: 20141230

REACTIONS (2)
  - Diarrhoea [Not Recovered/Not Resolved]
  - Faecal volume increased [Not Recovered/Not Resolved]

NARRATIVE: CASE EVENT DATE: 20160503
